FAERS Safety Report 5559742-7 (Version None)
Quarter: 2007Q4

REPORT INFORMATION
  Report Type: 
  Country: None (occurrence: None)
  Receive Date: 20071214
  Receipt Date: 20071011
  Transmission Date: 20080405
  Serious: Yes (Hospitalization, Other)
  Sender: FDA-Public Use
  Company Number: US-ABBOTT-07P-163-0420610-00

PATIENT
  Sex: Female
  Weight: 106.4 kg

DRUGS (11)
  1. HUMIRA [Suspect]
     Indication: PSORIATIC ARTHROPATHY
     Route: 058
     Dates: start: 20070917
  2. LEVOFLOXACIN [Concomitant]
     Indication: DRUG USE FOR UNKNOWN INDICATION
  3. METRONIDAZOLE HCL [Concomitant]
     Indication: DRUG USE FOR UNKNOWN INDICATION
  4. INSULIN HUMAN INJECTION, ISOPHANE [Concomitant]
     Indication: DRUG USE FOR UNKNOWN INDICATION
     Route: 058
  5. METOPROLOL [Concomitant]
     Indication: DRUG USE FOR UNKNOWN INDICATION
  6. LISINOPRIL [Concomitant]
     Indication: DRUG USE FOR UNKNOWN INDICATION
  7. FOLIC ACID [Concomitant]
     Indication: DRUG USE FOR UNKNOWN INDICATION
  8. ACETYLSALICYLIC ACID SRT [Concomitant]
     Indication: DRUG USE FOR UNKNOWN INDICATION
     Dosage: 2 PILLS
  9. METHOTREXATE INJECTABLES [Concomitant]
     Indication: DRUG USE FOR UNKNOWN INDICATION
  10. TENEZEPAM [Concomitant]
     Indication: DRUG USE FOR UNKNOWN INDICATION
  11. GLIBIZIDE [Concomitant]
     Indication: DRUG USE FOR UNKNOWN INDICATION

REACTIONS (12)
  - ABDOMINAL PAIN LOWER [None]
  - BACTERIAL INFECTION [None]
  - DEHYDRATION [None]
  - DIARRHOEA [None]
  - DYSURIA [None]
  - FEELING HOT [None]
  - GASTROINTESTINAL DISORDER [None]
  - HYPERTENSION [None]
  - HYPOTENSION [None]
  - MALAISE [None]
  - PHARYNGOLARYNGEAL PAIN [None]
  - RHINORRHOEA [None]
